FAERS Safety Report 9769879 (Version 1)
Quarter: 2013Q4

REPORT INFORMATION
  Report Type: Spontaneous
  Country: US (occurrence: US)
  Receive Date: 20131218
  Receipt Date: 20131218
  Transmission Date: 20140711
  Serious: No
  Sender: FDA-Public Use
  Company Number: US-VERTEX PHARMACEUTICALS INC-AE-2011-000964

PATIENT
  Sex: Male

DRUGS (5)
  1. INCIVEK [Suspect]
     Indication: HEPATITIS C
     Dates: start: 20110802, end: 20110803
  2. INCIVEK [Suspect]
     Dates: start: 20110806
  3. RIBAVIRIN [Concomitant]
     Indication: HEPATITIS C
     Dates: start: 20110802, end: 20110803
  4. RIBAVIRIN [Concomitant]
     Dates: start: 20110806
  5. PEGINTERFERON [Concomitant]
     Indication: HEPATITIS C
     Dates: start: 20110802

REACTIONS (4)
  - Pain [Recovered/Resolved]
  - Pyrexia [Recovered/Resolved]
  - Fatigue [Recovered/Resolved]
  - Nausea [Recovered/Resolved]
